FAERS Safety Report 5671270-7 (Version None)
Quarter: 2008Q1

REPORT INFORMATION
  Report Type: 
  Country: None (occurrence: None)
  Receive Date: 20080318
  Receipt Date: 20080306
  Transmission Date: 20080703
  Serious: Yes (Hospitalization, Other)
  Sender: FDA-Public Use
  Company Number: CA-PFIZER INC-2008011337

PATIENT
  Age: 50 Year
  Sex: Female

DRUGS (6)
  1. CHAMPIX [Suspect]
     Indication: SMOKING CESSATION THERAPY
     Route: 048
     Dates: start: 20080109, end: 20080101
  2. DILANTIN [Concomitant]
     Indication: EPILEPSY
  3. ATIVAN [Concomitant]
  4. FLOVENT [Concomitant]
  5. VENTOLIN [Concomitant]
  6. LYRICA [Concomitant]
     Indication: PAIN
     Route: 048

REACTIONS (2)
  - EPILEPSY [None]
  - FEELING DRUNK [None]
